FAERS Safety Report 8354783-9 (Version None)
Quarter: 2012Q2

REPORT INFORMATION
  Report Type: 
  Country: None (occurrence: None)
  Receive Date: 20120511
  Receipt Date: 20110309
  Transmission Date: 20120825
  Serious: No
  Sender: FDA-Public Use
  Company Number: US-TEVA-2011001110

PATIENT
  Sex: Female
  Weight: 57.658 kg

DRUGS (2)
  1. KETOROLAC TROMETHAMINE [Concomitant]
  2. NUVIGIL [Suspect]
     Indication: FATIGUE
     Dosage: 250 MILLIGRAM;
     Route: 048
     Dates: start: 20101001, end: 20110308

REACTIONS (2)
  - AGITATION [None]
  - ABNORMAL BEHAVIOUR [None]
